FAERS Safety Report 5775877-8 (Version None)
Quarter: 2008Q2

REPORT INFORMATION
  Report Type: 
  Country: None (occurrence: None)
  Receive Date: 20080617
  Receipt Date: 20080603
  Transmission Date: 20081010
  Serious: Yes (Hospitalization, Other)
  Sender: FDA-Public Use
  Company Number: CH-ELI_LILLY_AND_COMPANY-CH200805003922

PATIENT
  Age: 47 Year
  Sex: Female

DRUGS (6)
  1. CYMBALTA [Suspect]
     Indication: DEPRESSION
     Dosage: 30 MG, DAILY (1/D)
     Route: 048
     Dates: start: 20080101, end: 20080201
  2. CYMBALTA [Suspect]
     Dosage: 60 MG, DAILY (1/D)
     Route: 048
     Dates: start: 20080201, end: 20080211
  3. STILNOX [Concomitant]
     Dosage: 12.5 MG, DAILY (1/D)
     Route: 048
     Dates: start: 20080202, end: 20080202
  4. LAMICTAL [Concomitant]
     Dosage: 800 MG, DAILY (1/D)
     Route: 048
     Dates: start: 20020101
  5. TRITTICO [Concomitant]
     Dosage: 50 MG, DAILY (1/D)
     Route: 048
     Dates: end: 20080227
  6. DUPHALAC [Concomitant]
     Dosage: 15 ML, DAILY (1/D)
     Route: 065
     Dates: start: 20080202, end: 20080208

REACTIONS (6)
  - AGITATION [None]
  - CONFUSIONAL STATE [None]
  - DEPRESSION [None]
  - FEELING ABNORMAL [None]
  - NIGHTMARE [None]
  - SLEEP DISORDER [None]
